FAERS Safety Report 9281240 (Version 1)
Quarter: 2013Q2

REPORT INFORMATION
  Report Type: Spontaneous
  Country: US (occurrence: None)
  Receive Date: 20130502
  Receipt Date: 20130502
  Transmission Date: 20140414
  Serious: No
  Sender: FDA-Public Use
  Company Number: PI-09137

PATIENT
  Age: 21 Year
  Sex: Female

DRUGS (1)
  1. CHLORAPREP (2% CHG/70%/PA) WITH TINT (FD+C YELLOW#6) [Suspect]
     Indication: PREOPERATIVE CARE
     Route: 061
     Dates: start: 20130321

REACTIONS (3)
  - Application site rash [None]
  - Postoperative wound infection [None]
  - Rash [None]
